FAERS Safety Report 10754614 (Version 1)
Quarter: 2015Q1

REPORT INFORMATION
  Report Type: Spontaneous
  Country: NZ (occurrence: NZ)
  Receive Date: 20150202
  Receipt Date: 20150202
  Transmission Date: 20150721
  Serious: Yes (Death)
  Sender: FDA-Public Use
  Company Number: NZ-009507513-0612NZL00027

PATIENT
  Age: 83 Year
  Sex: Male

DRUGS (5)
  1. DONEPEZIL HYDROCHLORIDE. [Suspect]
     Active Substance: DONEPEZIL HYDROCHLORIDE
     Indication: DEMENTIA ALZHEIMER^S TYPE
     Dosage: UNK UNK, QD
     Route: 048
     Dates: start: 20011025, end: 20020312
  2. ASPIRIN. [Suspect]
     Active Substance: ASPIRIN
     Dosage: 100 MG, QD
     Route: 048
     Dates: end: 200203
  3. LIPEX [Suspect]
     Active Substance: SIMVASTATIN
     Indication: HYPERLIPIDAEMIA
     Dosage: 20 MG, QD
     Route: 048
     Dates: end: 200203
  4. HYDROXYUREA. [Suspect]
     Active Substance: HYDROXYUREA
     Indication: PROSTATE CANCER
     Dosage: 2.5 G, QW
     Route: 048
     Dates: end: 200203
  5. FOSAMAX [Suspect]
     Active Substance: ALENDRONATE SODIUM
     Indication: OSTEOARTHRITIS
     Dosage: 70 MG, QW
     Route: 048
     Dates: end: 200203

REACTIONS (5)
  - Death [Fatal]
  - Pneumonia [Unknown]
  - Gastric ulcer [Unknown]
  - Myalgia [Unknown]
  - Gastric ulcer haemorrhage [Unknown]

NARRATIVE: CASE EVENT DATE: 200210
